FAERS Safety Report 19401785 (Version 1)
Quarter: 2021Q2

REPORT INFORMATION
  Report Type: Spontaneous
  Country: US (occurrence: US)
  Receive Date: 20210611
  Receipt Date: 20210611
  Transmission Date: 20210717
  Serious: Yes (Other)
  Sender: FDA-Public Use
  Company Number: US-B.I. PHARMACEUTICALS,INC./RIDGEFIELD-2021-BI-107806

PATIENT
  Age: 67 Year
  Sex: Female

DRUGS (3)
  1. JARDIANCE [Suspect]
     Active Substance: EMPAGLIFLOZIN
     Dosage: 1 (10 MG) TABLET ONCE DAILY
     Route: 065
     Dates: start: 20210323, end: 202105
  2. DOXYCYCLINE HYCLATE. [Concomitant]
     Active Substance: DOXYCYCLINE HYCLATE
     Indication: VAGINAL ABSCESS
     Dosage: 1 (100 MG) TABLET TWICE DAILY
     Dates: start: 20210513
  3. JARDIANCE [Suspect]
     Active Substance: EMPAGLIFLOZIN
     Indication: BLOOD GLUCOSE INCREASED
     Dosage: 1 (25 MG) TABLET DAILY IN THE MORNING
     Dates: start: 202105

REACTIONS (1)
  - Vaginal abscess [Recovering/Resolving]

NARRATIVE: CASE EVENT DATE: 202104
